FAERS Safety Report 13948957 (Version 1)
Quarter: 2017Q3

REPORT INFORMATION
  Report Type: Spontaneous
  Country: PL (occurrence: PL)
  Receive Date: 20170908
  Receipt Date: 20170908
  Transmission Date: 20171128
  Serious: Yes (Disabling)
  Sender: FDA-Public Use
  Company Number: PHHY2017PL130931

PATIENT
  Sex: Female

DRUGS (3)
  1. AMOKSIKLAV [Suspect]
     Active Substance: AMOXICILLIN\CLAVULANATE POTASSIUM
     Indication: LYMPHADENOPATHY
  2. LEUKERAN [Suspect]
     Active Substance: CHLORAMBUCIL
     Indication: LYMPHOMA
     Dosage: UNK UNK, Q2W
     Route: 065
  3. AMOKSIKLAV [Suspect]
     Active Substance: AMOXICILLIN\CLAVULANATE POTASSIUM
     Indication: PHARYNGITIS
     Dosage: UNK
     Route: 065
     Dates: start: 20170827

REACTIONS (2)
  - Asthenia [Recovering/Resolving]
  - Bedridden [Recovering/Resolving]

NARRATIVE: CASE EVENT DATE: 20170829
